FAERS Safety Report 14631191 (Version 4)
Quarter: 2018Q2

REPORT INFORMATION
  Report Type: Spontaneous
  Country: US (occurrence: US)
  Receive Date: 20180313
  Receipt Date: 20180510
  Transmission Date: 20180711
  Serious: Yes (Other)
  Sender: FDA-Public Use
  Company Number: US-NOVOPROD-587455

PATIENT
  Age: 52 Year
  Sex: Female

DRUGS (3)
  1. HUMULIN NOS [Concomitant]
     Active Substance: INSULIN HUMAN
     Indication: TYPE 1 DIABETES MELLITUS
     Dosage: UNK
  2. LEVEMIR [Suspect]
     Active Substance: INSULIN DETEMIR
     Indication: TYPE 1 DIABETES MELLITUS
     Dosage: UNK (SLIDING SCALE)
     Route: 058
  3. LEVEMIR [Suspect]
     Active Substance: INSULIN DETEMIR
     Indication: TYPE 1 DIABETES MELLITUS
     Dosage: SLIDING SCALE
     Route: 058
     Dates: start: 2015

REACTIONS (14)
  - Drug ineffective [Recovering/Resolving]
  - Eczema [Not Recovered/Not Resolved]
  - Micturition urgency [Unknown]
  - Increased insulin requirement [Unknown]
  - Drug effect decreased [Unknown]
  - Renal injury [Not Recovered/Not Resolved]
  - Sleep disorder [Unknown]
  - Agitation [Unknown]
  - Weight increased [Unknown]
  - Blood glucose increased [Not Recovered/Not Resolved]
  - Device malfunction [Unknown]
  - Glycosylated haemoglobin increased [Not Recovered/Not Resolved]
  - Stress [Unknown]
  - Drug effect faster than expected [Unknown]

NARRATIVE: CASE EVENT DATE: 201712
